FAERS Safety Report 5368948-1 (Version None)
Quarter: 2007Q2

REPORT INFORMATION
  Report Type: 
  Country: None (occurrence: None)
  Receive Date: 20070625
  Receipt Date: 20061129
  Transmission Date: 20071010
  Serious: No
  Sender: FDA-Public Use
  Company Number: US-ASTRAZENECA-2006UW26703

PATIENT
  Age: 74 Year
  Sex: Female
  Weight: 60.8 kg

DRUGS (6)
  1. CRESTOR [Suspect]
     Indication: BLOOD CHOLESTEROL INCREASED
     Route: 048
  2. COUMADIN [Concomitant]
     Indication: HEART VALVE OPERATION
  3. MONOPRIL [Concomitant]
  4. ATENOLOL [Concomitant]
     Indication: HYPERTENSION
  5. PREMARIN [Concomitant]
  6. SINGULAIR [Concomitant]

REACTIONS (2)
  - ANAEMIA [None]
  - NIGHT SWEATS [None]
